FAERS Safety Report 13269726 (Version 1)
Quarter: 2017Q1

REPORT INFORMATION
  Report Type: Spontaneous
  Country: FR (occurrence: FR)
  Receive Date: 20170224
  Receipt Date: 20170224
  Transmission Date: 20170428
  Serious: Yes (Other)
  Sender: FDA-Public Use
  Company Number: FR-PFIZER INC-2017077811

PATIENT
  Age: 77 Year
  Sex: Female

DRUGS (3)
  1. LERCAN [Suspect]
     Active Substance: LERCANIDIPINE
     Dosage: UNK
     Route: 048
  2. PROPRANOLOL [Suspect]
     Active Substance: PROPRANOLOL HYDROCHLORIDE
     Dosage: 30 MG, 2X/DAY
     Route: 048
  3. NEURONTIN [Suspect]
     Active Substance: GABAPENTIN
     Indication: NEUROPATHY PERIPHERAL
     Dosage: 400 MG, 1X/DAY
     Route: 048
     Dates: start: 201308, end: 20161215

REACTIONS (2)
  - Hyperkalaemia [Recovered/Resolved with Sequelae]
  - Renal failure [Unknown]

NARRATIVE: CASE EVENT DATE: 201408
